FAERS Safety Report 18038530 (Version 1)
Quarter: 2020Q3

REPORT INFORMATION
  Report Type: Spontaneous
  Country: DE (occurrence: DE)
  Receive Date: 20200717
  Receipt Date: 20200717
  Transmission Date: 20201103
  Serious: Yes (Hospitalization)
  Sender: FDA-Public Use
  Company Number: DE-PFIZER INC-2020271201

PATIENT
  Sex: Male
  Weight: 1.97 kg

DRUGS (11)
  1. DEXAMETHASONE. [Suspect]
     Active Substance: DEXAMETHASONE
     Dosage: 4 MG ON DAYS 2 AND 6 PRENATAL PHASE
     Route: 064
  2. CYCLOPHOSPHAMIDE. [Suspect]
     Active Substance: CYCLOPHOSPHAMIDE
     Dosage: 750 MG/M2 OVER 1 HOUR ON DAY 2
     Route: 064
  3. DOXORUBICIN [Suspect]
     Active Substance: DOXORUBICIN
     Dosage: 50 MG/M2 OVER 30 MINUTES ON DAY 2
     Route: 064
  4. VINCRISTINE [Suspect]
     Active Substance: VINCRISTINE
     Dosage: 2 MG ON DAY 2 PRENATAL PHASE
     Route: 064
  5. CYTARABINE. [Suspect]
     Active Substance: CYTARABINE
     Dosage: 40 MG ON DAYS 2 AND 6 PRENATAL PHASE
     Route: 064
  6. ETOPOSIDE. [Suspect]
     Active Substance: ETOPOSIDE
     Dosage: 100 MG/M2 OVER 1 HOUR ON DAYS 2?4 PRENATAL PHASE
     Route: 064
  7. PREDNISOLONE. [Suspect]
     Active Substance: PREDNISOLONE
     Dosage: 100 MG ON DAYS 2?5 PRENATAL PHASE
     Route: 064
  8. CYTARABINE. [Suspect]
     Active Substance: CYTARABINE
     Dosage: 150 MG/M2 OVER 1 HOUR EVERY 12 HOURS ON DAYS 2?6 PRENATAL PHASE
     Route: 064
  9. FILGRASTIM [Suspect]
     Active Substance: FILGRASTIM
     Dosage: 10 UG/KG ON DAYS 6?11 PRENATAL PHASE
     Route: 064
  10. RITUXIMAB. [Suspect]
     Active Substance: RITUXIMAB
     Dosage: 375 MG/M2 OVER 3 HOURS ON DAY 1 PRENATAL PHASE
     Route: 064
  11. MESNA. [Suspect]
     Active Substance: MESNA
     Dosage: 200 MG/M2 AT 0, 4, AND 8 HOURS AFTER CPA DAY 2 PRENATAL PHASE
     Route: 064

REACTIONS (6)
  - Foetal growth restriction [Unknown]
  - Low birth weight baby [Unknown]
  - Foetal exposure during pregnancy [Unknown]
  - Premature baby [Unknown]
  - Bacterial infection [Unknown]
  - Small for dates baby [Unknown]
